FAERS Safety Report 6928578-4 (Version None)
Quarter: 2010Q3

REPORT INFORMATION
  Report Type: 
  Country: None (occurrence: None)
  Receive Date: 20100817
  Receipt Date: 20100811
  Transmission Date: 20110219
  Serious: Yes (Hospitalization)
  Sender: FDA-Public Use
  Company Number: A0743582A

PATIENT
  Age: 51 Year
  Sex: Female

DRUGS (1)
  1. AVANDIA [Suspect]
     Dosage: 2MG PER DAY
     Route: 048
     Dates: start: 20001101, end: 20051101

REACTIONS (4)
  - CARDIAC FAILURE CONGESTIVE [None]
  - JOINT INJURY [None]
  - LOSS OF CONSCIOUSNESS [None]
  - PANIC ATTACK [None]
